FAERS Safety Report 8157650-9 (Version None)
Quarter: 2012Q1

REPORT INFORMATION
  Report Type: 
  Country: None (occurrence: None)
  Receive Date: 20120222
  Receipt Date: 20120209
  Transmission Date: 20120608
  Serious: Yes (Hospitalization, Other)
  Sender: FDA-Public Use
  Company Number: PL-ELI_LILLY_AND_COMPANY-PL201103005031

PATIENT
  Sex: Male
  Weight: 73 kg

DRUGS (11)
  1. NECITUMUMAB (11F8) (LY3012211) [Suspect]
     Indication: NON-SMALL CELL LUNG CANCER
     Dosage: 800 MG, UNK
     Dates: start: 20110201, end: 20110301
  2. NECITUMUMAB (11F8) (LY3012211) [Suspect]
     Dosage: UNK
     Dates: start: 20110322
  3. CISPLATIN [Suspect]
     Indication: NON-SMALL CELL LUNG CANCER
     Dosage: 135 MG, UNK
     Dates: start: 20110201, end: 20110222
  4. CISPLATIN [Suspect]
     Dosage: UNK
     Dates: start: 20110322
  5. DEXAMETHASONE [Concomitant]
  6. GEMCITABINE HYDROCHLORIDE [Suspect]
     Dosage: UNK
     Dates: start: 20110322
  7. METOCARD [Concomitant]
     Indication: HYPERTENSION
     Dosage: UNK
  8. GEMCITABINE HYDROCHLORIDE [Suspect]
     Indication: NON-SMALL CELL LUNG CANCER
     Dosage: 2238 MG, UNK
     Dates: start: 20110201, end: 20110301
  9. KALIPOZ [Concomitant]
     Dosage: UNK
  10. FUROSEMIDE [Concomitant]
     Indication: HYPERTENSION
     Dosage: UNK
  11. ONDANSETRON [Concomitant]
     Dosage: UNK
     Dates: start: 20110201

REACTIONS (1)
  - PULMONARY EMBOLISM [None]
